FAERS Safety Report 24323750 (Version 1)
Quarter: 2024Q3

REPORT INFORMATION
  Report Type: Report from Study
  Country: US (occurrence: US)
  Receive Date: 20240916
  Receipt Date: 20240916
  Transmission Date: 20241017
  Serious: Yes (Death, Other)
  Sender: GILEAD
  Company Number: US-GILEAD-2024-0687714

PATIENT
  Age: 79 Year
  Sex: Male

DRUGS (19)
  1. AZTREONAM LYSINE [Suspect]
     Active Substance: AZTREONAM LYSINE
     Indication: Cystic fibrosis
     Dosage: RECONSTITUTE WITH 1ML SUPPLIED DILUENT, SWIRL GENTLY THEN ADD TO NEBULIZER MACHINE + NEBULIZE 3 TIME
     Route: 065
  2. ANDROGEL [Concomitant]
     Active Substance: TESTOSTERONE
  3. CALTRATE 600 PLUS [Concomitant]
  4. COLISTIMETHATE SODIUM [Concomitant]
     Active Substance: COLISTIMETHATE SODIUM
  5. CREON [Concomitant]
     Active Substance: PANCRELIPASE AMYLASE\PANCRELIPASE LIPASE\PANCRELIPASE PROTEASE
  6. DEKAS ESSENTIAL [Concomitant]
  7. FAMOTIDINE [Concomitant]
     Active Substance: FAMOTIDINE
  8. FLUTICASONE PROPIONATE [Concomitant]
     Active Substance: FLUTICASONE PROPIONATE
  9. LEVALBUTEROL [Concomitant]
     Active Substance: LEVALBUTEROL
  10. PAROXETINE [Concomitant]
     Active Substance: PAROXETINE
  11. PULMOZYME [Concomitant]
     Active Substance: DORNASE ALFA
  12. SODIUM CHLORIDE [Concomitant]
     Active Substance: SODIUM CHLORIDE
  13. MORNIFLUMATE [Concomitant]
     Active Substance: MORNIFLUMATE
  14. LEVALBUTEROL HYDROCHLORIDE [Concomitant]
     Active Substance: LEVALBUTEROL HYDROCHLORIDE
  15. KALYDECO [Concomitant]
     Active Substance: IVACAFTOR
  16. PERTZYE [Concomitant]
     Active Substance: PANCRELIPASE AMYLASE\PANCRELIPASE LIPASE\PANCRELIPASE PROTEASE
  17. ALLOPURINOL [Concomitant]
     Active Substance: ALLOPURINOL
  18. METOPROLOL SUCCINATE [Concomitant]
     Active Substance: METOPROLOL SUCCINATE
  19. DUPIXENT [Concomitant]
     Active Substance: DUPILUMAB

REACTIONS (1)
  - Death [Fatal]

NARRATIVE: CASE EVENT DATE: 20240806
